FAERS Safety Report 4432432-X (Version None)
Quarter: 2004Q3

REPORT INFORMATION
  Report Type: 
  Country: None (occurrence: None)
  Receive Date: 20040820
  Receipt Date: 20040805
  Transmission Date: 20050211
  Serious: Yes (Hospitalization)
  Sender: FDA-Public Use
  Company Number: 2004AP03489

PATIENT
  Age: 47 Year
  Sex: Male
  Weight: 68 kg

DRUGS (19)
  1. SEROQUEL [Suspect]
     Indication: PSYCHOTIC DISORDER DUE TO A GENERAL MEDICAL CONDITION
     Dosage: 200 MG DAILY PO
     Route: 048
     Dates: start: 20040517, end: 20040519
  2. SEROQUEL [Suspect]
     Indication: PSYCHOTIC DISORDER DUE TO A GENERAL MEDICAL CONDITION
     Dosage: 300 MG DAILY PO
     Route: 048
     Dates: start: 20040520, end: 20040617
  3. PROHANCE [Suspect]
     Indication: NUCLEAR MAGNETIC RESONANCE IMAGING
     Dates: start: 20040525, end: 20040525
  4. HIRNAMIN [Suspect]
     Dosage: 50 MG PO
     Route: 048
     Dates: start: 20040428, end: 20040429
  5. HIRNAMIN [Suspect]
     Dosage: 75 MG PO
     Route: 048
     Dates: start: 20040430, end: 20040506
  6. HIRNAMIN [Suspect]
     Dosage: 150 MG PO
     Route: 048
     Dates: start: 20040507, end: 20040512
  7. HIRNAMIN [Suspect]
     Dosage: 200 MG PO
     Route: 048
     Dates: start: 20040513, end: 20040625
  8. PL GRAN. [Suspect]
     Indication: NASOPHARYNGITIS
     Dosage: 3 G PO
     Route: 048
     Dates: start: 20040612, end: 20040614
  9. AKINETON /AUS/ [Suspect]
     Dosage: 3 MG PO
     Route: 048
     Dates: start: 20040503, end: 20040617
  10. SELENASE [Suspect]
     Dosage: 2 MG PO
     Route: 048
     Dates: start: 20040426, end: 20040502
  11. SELENASE [Suspect]
     Dosage: 6 MG PO
     Route: 048
     Dates: start: 20040503, end: 20040512
  12. SELENASE [Suspect]
     Dosage: 12 MG PO
     Route: 048
     Dates: start: 20040513, end: 20040613
  13. SELENASE [Suspect]
     Dosage: 9 MG PO
     Route: 048
     Dates: start: 20040614
  14. ALEVIATIN [Suspect]
     Dosage: 500 MG PO
     Route: 048
     Dates: start: 20040426, end: 20040427
  15. ALEVIATIN [Suspect]
     Dosage: 300 MG PO
     Route: 048
     Dates: start: 20040428, end: 20040625
  16. GASTER [Suspect]
     Dosage: 40 MG PO
     Route: 048
     Dates: start: 20040513, end: 20040616
  17. TEGRETOL [Suspect]
     Dosage: 400 MG PO
     Route: 048
     Dates: start: 20040501, end: 20040526
  18. TEGRETOL [Suspect]
     Dosage: 600 MG PO
     Route: 048
     Dates: start: 20040527, end: 20040614
  19. ARASENA A [Suspect]
     Indication: ENCEPHALITIS HERPES
     Dosage: 600 MG IV
     Route: 042
     Dates: start: 20040521, end: 20040530

REACTIONS (5)
  - DRUG ERUPTION [None]
  - HEPATIC ENZYME INCREASED [None]
  - HEPATIC FUNCTION ABNORMAL [None]
  - LYMPHOCYTE STIMULATION TEST POSITIVE [None]
  - NASOPHARYNGITIS [None]
